FAERS Safety Report 20213382 (Version 1)
Quarter: 2021Q4

REPORT INFORMATION
  Report Type: Spontaneous
  Country: US (occurrence: None)
  Receive Date: 20211221
  Receipt Date: 20211221
  Transmission Date: 20220303
  Serious: No
  Sender: FDA-Public Use
  Company Number: None

PATIENT
  Age: 71 Year
  Sex: Female
  Weight: 73.8 kg

DRUGS (13)
  1. NEBIVOLOL [Suspect]
     Active Substance: NEBIVOLOL
     Indication: Hypertension
     Route: 048
     Dates: start: 20211218, end: 20211221
  2. NOVOLOG [Concomitant]
     Active Substance: INSULIN ASPART
     Indication: Hypertension
  3. ARMOUR THYROID [Concomitant]
     Active Substance: THYROID, PORCINE
  4. BYSTOLIC [Concomitant]
     Active Substance: NEBIVOLOL HYDROCHLORIDE
  5. CLONIDINE [Concomitant]
     Active Substance: CLONIDINE
  6. Nitrogylcerin patch [Concomitant]
  7. ASCORBIC ACID [Concomitant]
     Active Substance: ASCORBIC ACID
  8. BETA CAROTENE [Concomitant]
     Active Substance: BETA CAROTENE
  9. PROBIOTICS NOS [Concomitant]
     Active Substance: PROBIOTICS NOS
  10. Vitamin D3/K2 [Concomitant]
  11. VITAMIN B COMPLEX [Concomitant]
     Active Substance: CYANOCOBALAMIN\DEXPANTHENOL\NIACINAMIDE\PYRIDOXINE HYDROCHLORIDE\RIBOFLAVIN 5^-PHOSPHATE SODIUM\THIA
  12. ST. JOHN^S WORT [Concomitant]
     Active Substance: ST. JOHN^S WORT
  13. ASPIRIN [Concomitant]
     Active Substance: ASPIRIN

REACTIONS (9)
  - Product substitution issue [None]
  - Blood pressure increased [None]
  - Dizziness [None]
  - Headache [None]
  - Chest discomfort [None]
  - Gastrooesophageal reflux disease [None]
  - Fatigue [None]
  - Joint swelling [None]
  - Arthralgia [None]

NARRATIVE: CASE EVENT DATE: 20211218
